FAERS Safety Report 6272870-6 (Version None)
Quarter: 2009Q3

REPORT INFORMATION
  Report Type: 
  Country: None (occurrence: None)
  Receive Date: 20090717
  Receipt Date: 20090428
  Transmission Date: 20100115
  Serious: Yes (Death)
  Sender: FDA-Public Use
  Company Number: DE-GENENTECH-281404

PATIENT
  Sex: Female

DRUGS (4)
  1. BEVACIZUMAB [Suspect]
     Indication: COLORECTAL CANCER METASTATIC
     Route: 042
  2. OXALIPLATIN [Suspect]
     Indication: COLORECTAL CANCER
     Dosage: 85 MG/M2, UNK
     Route: 042
     Dates: start: 20061213, end: 20090113
  3. FOLINIC ACID [Suspect]
     Indication: COLORECTAL CANCER
     Dosage: 400 MG/M2, UNK
     Route: 042
     Dates: start: 20061213, end: 20070113
  4. FLUOROURACIL [Suspect]
     Indication: COLORECTAL CANCER
     Dosage: 2400 MG/M2, UNK
     Route: 042
     Dates: start: 20061213, end: 20070113

REACTIONS (1)
  - NEOPLASM PROGRESSION [None]
